FAERS Safety Report 5030746-6 (Version None)
Quarter: 2006Q2

REPORT INFORMATION
  Report Type: 
  Country: None (occurrence: None)
  Receive Date: 20060615
  Receipt Date: 20060602
  Transmission Date: 20061013
  Serious: Yes (Hospitalization, Other)
  Sender: FDA-Public Use
  Company Number: FR_050907104

PATIENT
  Age: 71 Year
  Sex: Male
  Weight: 45 kg

DRUGS (4)
  1. GEMZAR [Suspect]
     Indication: PANCREATIC CARCINOMA
     Dosage: 1000 MG/M2, WEEKLY (1/W), INTRAVENOUS
     Route: 042
     Dates: start: 20050209, end: 20050810
  2. PLITICAN (ALIZAPRIDE HYDROCHLORIDE) [Concomitant]
  3. DELURSAN (URSODEOXYCHOLIC ACID) [Concomitant]
  4. OMEPRAZOLE [Concomitant]

REACTIONS (7)
  - GENERALISED OEDEMA [None]
  - HAEMOLYTIC ANAEMIA [None]
  - HAEMOLYTIC URAEMIC SYNDROME [None]
  - HYPERTENSION [None]
  - RENAL FAILURE [None]
  - SPLENIC INFARCTION [None]
  - THROMBOCYTOPENIA [None]
